FAERS Safety Report 9435766 (Version 1)
Quarter: 2013Q3

REPORT INFORMATION
  Report Type: Spontaneous
  Country: US (occurrence: None)
  Receive Date: 20130801
  Receipt Date: 20130801
  Transmission Date: 20140515
  Serious: No
  Sender: FDA-Public Use
  Company Number: None

PATIENT
  Age: 15 Year
  Sex: Female

DRUGS (1)
  1. TEV-TROPIN [Suspect]
     Indication: GONADAL DYSGENESIS
     Route: 058
     Dates: start: 20121107

REACTIONS (2)
  - Haematochezia [None]
  - Helicobacter infection [None]
